FAERS Safety Report 6767350-5 (Version None)
Quarter: 2010Q2

REPORT INFORMATION
  Report Type: 
  Country: None (occurrence: None)
  Receive Date: 20100614
  Receipt Date: 20100512
  Transmission Date: 20101027
  Serious: No
  Sender: FDA-Public Use
  Company Number: US-BAYER-201015554BCC

PATIENT
  Age: 46 Year
  Sex: Female
  Weight: 66 kg

DRUGS (4)
  1. ALEVE (CAPLET) [Suspect]
     Indication: HEADACHE
     Dosage: AS USED: 220 MG  UNIT DOSE: 220 MG
     Route: 048
     Dates: start: 20100401, end: 20100401
  2. WOMEN'S MULTIVITAMIN [Concomitant]
  3. FERROUS SULFATE TAB [Concomitant]
  4. FINOGRICO [Concomitant]

REACTIONS (2)
  - GASTRITIS [None]
  - HUNGER [None]
